FAERS Safety Report 6674847-5 (Version None)
Quarter: 2010Q2

REPORT INFORMATION
  Report Type: 
  Country: None (occurrence: None)
  Receive Date: 20100409
  Receipt Date: 20100331
  Transmission Date: 20101027
  Serious: Yes (Hospitalization, Other)
  Sender: FDA-Public Use
  Company Number: DE-JNJFOC-20100305408

PATIENT
  Sex: Female
  Weight: 65 kg

DRUGS (5)
  1. RISPERDAL [Suspect]
     Indication: DELUSION
     Route: 048
     Dates: start: 20100129, end: 20100317
  2. RISPERDAL [Suspect]
     Indication: PSYCHOTIC DISORDER
     Route: 048
     Dates: start: 20100129, end: 20100317
  3. CIPRALEX [Concomitant]
     Indication: DEPRESSION
     Route: 048
     Dates: start: 20100111
  4. TAVOR [Concomitant]
     Indication: SUICIDAL IDEATION
     Route: 048
     Dates: start: 20100117, end: 20100218
  5. ZOPICLON [Concomitant]
     Indication: SLEEP DISORDER
     Route: 048
     Dates: start: 20100128, end: 20100304

REACTIONS (3)
  - LEUKOPENIA [None]
  - LYMPHOCYTE COUNT DECREASED [None]
  - NEUTROPHIL COUNT DECREASED [None]
